FAERS Safety Report 5591105-0 (Version None)
Quarter: 2008Q1

REPORT INFORMATION
  Report Type: 
  Country: None (occurrence: None)
  Receive Date: 20080115
  Receipt Date: 20080108
  Transmission Date: 20080703
  Serious: Yes (Hospitalization)
  Sender: FDA-Public Use
  Company Number: PHRM2007FR01566

PATIENT
  Age: 73 Year
  Sex: Male

DRUGS (7)
  1. ISOPTIN [Concomitant]
     Dosage: 240 MG, QD
     Route: 048
  2. KARDEGIC [Concomitant]
     Dosage: 75 MG, QD
     Route: 048
  3. AMARYL [Concomitant]
     Dosage: 2 MG/DAY
     Route: 048
  4. COTAREG [Concomitant]
     Dosage: 160 MG/DAY
     Route: 048
  5. LYSANXIA [Concomitant]
     Dosage: 10 MG, QD
     Route: 048
  6. ZOPICLONE [Concomitant]
  7. VOLTAREN [Suspect]
     Indication: ARTHRALGIA
     Dosage: UNK, UNK
     Route: 061
     Dates: start: 20070402, end: 20070411

REACTIONS (6)
  - DERMATITIS ALLERGIC [None]
  - DERMATITIS CONTACT [None]
  - ECZEMA WEEPING [None]
  - ERYTHEMA [None]
  - LOCALISED OEDEMA [None]
  - PAIN [None]
